FAERS Safety Report 5651847-5 (Version None)
Quarter: 2008Q1

REPORT INFORMATION
  Report Type: 
  Country: None (occurrence: None)
  Receive Date: 20080305
  Receipt Date: 20080222
  Transmission Date: 20080703
  Serious: Yes (Hospitalization, Other)
  Sender: FDA-Public Use
  Company Number: US-PFIZER INC-2008016687

PATIENT
  Sex: Male
  Weight: 19.181 kg

DRUGS (3)
  1. SILDENAFIL (PAH) [Suspect]
     Indication: PULMONARY HYPERTENSION
  2. ASPIRIN [Interacting]
     Indication: PULMONARY HYPERTENSION
     Dates: start: 20070904, end: 20071205
  3. OXYGEN [Concomitant]

REACTIONS (11)
  - CHEST X-RAY ABNORMAL [None]
  - COUGH [None]
  - DRUG INEFFECTIVE [None]
  - DRUG INTERACTION [None]
  - HYPOXIA [None]
  - NEUTROPHIL COUNT INCREASED [None]
  - PROTEIN TOTAL DECREASED [None]
  - RASH [None]
  - RASH PRURITIC [None]
  - RESPIRATORY TRACT INFECTION VIRAL [None]
  - WHITE BLOOD CELL COUNT INCREASED [None]
